FAERS Safety Report 9475933 (Version 1)
Quarter: 2013Q3

REPORT INFORMATION
  Report Type: Spontaneous
  Country: US (occurrence: US)
  Receive Date: 20130826
  Receipt Date: 20130826
  Transmission Date: 20140515
  Serious: No
  Sender: FDA-Public Use
  Company Number: US-009507513-1308USA007337

PATIENT
  Age: 59 Year
  Sex: Male

DRUGS (3)
  1. METHYLPREDNISOLONE SODIUM SUCCINATE [Suspect]
     Indication: IMMUNOSUPPRESSION
     Dosage: UNK
  2. MYCOPHENOLIC ACID [Suspect]
     Indication: IMMUNOSUPPRESSION
     Dosage: UNK
  3. TACROLIMUS [Suspect]
     Indication: IMMUNOSUPPRESSION
     Dosage: UNK

REACTIONS (1)
  - Viral infection [Not Recovered/Not Resolved]
